FAERS Safety Report 8120187-7 (Version None)
Quarter: 2012Q1

REPORT INFORMATION
  Report Type: 
  Country: None (occurrence: None)
  Receive Date: 20120207
  Receipt Date: 20120130
  Transmission Date: 20120608
  Serious: Yes (Hospitalization)
  Sender: FDA-Public Use
  Company Number: US-BAYER-2011-048316

PATIENT
  Age: 32 Year
  Sex: Female
  Weight: 73.469 kg

DRUGS (8)
  1. ALPRAZOLAM [Concomitant]
  2. YASMIN [Suspect]
     Indication: CONTRACEPTION
     Dosage: UNK
     Dates: start: 20080601, end: 20090528
  3. MILK OF MAGNESIA TAB [Concomitant]
  4. NICOTINE [Concomitant]
  5. MAGNESIUM HYDROXIDE TAB [Concomitant]
  6. YASMIN [Suspect]
     Indication: HORMONE REPLACEMENT THERAPY
  7. ANALGESICS [Concomitant]
  8. MIRENA [Concomitant]

REACTIONS (6)
  - CHEST PAIN [None]
  - PULMONARY EMBOLISM [None]
  - PAIN [None]
  - EMOTIONAL DISTRESS [None]
  - ANHEDONIA [None]
  - DYSPNOEA [None]
